FAERS Safety Report 16280966 (Version 1)
Quarter: 2019Q2

REPORT INFORMATION
  Report Type: Spontaneous
  Country: NZ (occurrence: NZ)
  Receive Date: 20190507
  Receipt Date: 20190507
  Transmission Date: 20190711
  Serious: Yes (Other)
  Sender: FDA-Public Use
  Company Number: NZ-BAYER-2019-089626

PATIENT
  Age: 20 Year
  Sex: Female

DRUGS (2)
  1. MIRENA [Suspect]
     Active Substance: LEVONORGESTREL
  2. MIRENA [Suspect]
     Active Substance: LEVONORGESTREL
     Dosage: 20 MCG/24HR, CONT
     Route: 015

REACTIONS (8)
  - Infection [None]
  - Paraesthesia [Recovered/Resolved]
  - Chemical poisoning [None]
  - Patient-device incompatibility [None]
  - Migraine [Recovered/Resolved]
  - Depression [None]
  - Rash [Recovered/Resolved]
  - Alopecia [None]
